FAERS Safety Report 23408371 (Version 1)
Quarter: 2024Q1

REPORT INFORMATION
  Report Type: Spontaneous
  Country: NZ (occurrence: NZ)
  Receive Date: 20240117
  Receipt Date: 20240117
  Transmission Date: 20240410
  Serious: No
  Sender: FDA-Public Use
  Company Number: NZ-ALKEM LABORATORIES LIMITED-NZ-ALKEM-2023-14773

PATIENT
  Sex: Female

DRUGS (1)
  1. METHADONE HYDROCHLORIDE [Suspect]
     Active Substance: METHADONE HYDROCHLORIDE
     Indication: Product used for unknown indication
     Dosage: UNK
     Route: 048

REACTIONS (1)
  - Exposure during pregnancy [Unknown]
